FAERS Safety Report 5987666-X (Version None)
Quarter: 2008Q4

REPORT INFORMATION
  Report Type: 
  Country: None (occurrence: None)
  Receive Date: 20081209
  Receipt Date: 20081121
  Transmission Date: 20090506
  Serious: No
  Sender: FDA-Public Use
  Company Number: US-B.I. PHARMACEUTICALS,INC./RIDGEFIELD-2008-BP-16206BP

PATIENT
  Age: 76 Year
  Sex: Female

DRUGS (2)
  1. ATROVENT HFA [Suspect]
     Indication: COUGH
     Route: 055
     Dates: start: 20060101
  2. BENICAR [Suspect]
     Indication: HYPERTENSION
     Dates: start: 20080801

REACTIONS (1)
  - THROAT IRRITATION [None]
